FAERS Safety Report 19912740 (Version 1)
Quarter: 2021Q4

REPORT INFORMATION
  Report Type: Spontaneous
  Country: US (occurrence: US)
  Receive Date: 20211004
  Receipt Date: 20211004
  Transmission Date: 20220304
  Serious: No
  Sender: FDA-Public Use
  Company Number: None

PATIENT
  Age: 73 Year
  Sex: Female
  Weight: 60.75 kg

DRUGS (7)
  1. TRIAMTERENE [Suspect]
     Active Substance: TRIAMTERENE
     Indication: Meniere^s disease
     Dosage: ?          QUANTITY:1 CAPSULE(S);
     Route: 048
  2. VITAMIN C [Concomitant]
     Active Substance: ASCORBIC ACID
  3. VITAMIN D3 [Concomitant]
     Active Substance: CHOLECALCIFEROL
  4. VITAMIN B12 [Concomitant]
     Active Substance: CYANOCOBALAMIN
  5. BIOTIN [Concomitant]
     Active Substance: BIOTIN
  6. VITAMINS [Concomitant]
     Active Substance: VITAMINS
  7. ASPIRIN [Concomitant]
     Active Substance: ASPIRIN

REACTIONS (9)
  - Dizziness [None]
  - Dizziness [None]
  - Syncope [None]
  - Nausea [None]
  - Muscle spasms [None]
  - Chest discomfort [None]
  - Asthenia [None]
  - Palpitations [None]
  - Heart rate irregular [None]

NARRATIVE: CASE EVENT DATE: 19211002
